FAERS Safety Report 6083770-9 (Version None)
Quarter: 2009Q1

REPORT INFORMATION
  Report Type: 
  Country: None (occurrence: None)
  Receive Date: 20090217
  Receipt Date: 20090205
  Transmission Date: 20090719
  Serious: Yes (Other)
  Sender: FDA-Public Use
  Company Number: CIO09002843

PATIENT
  Sex: Female

DRUGS (4)
  1. NYQUIL ADULT, VERSION/FLAVOR UNKNWON (ETHANOL 10-25 %, DEXTROMETHORPHA [Suspect]
     Indication: MALAISE
     Dosage: 1 /DAY FOR 2 DAYS, ORAL
     Route: 048
     Dates: start: 20090126, end: 20090127
  2. LIPITOR [Concomitant]
  3. ASPIRIN [Concomitant]
  4. ^BLOOD PRESSURE MEDICATION^ [Concomitant]

REACTIONS (5)
  - ERYTHEMA [None]
  - HYPERSENSITIVITY [None]
  - LEUKOCYTOCLASTIC VASCULITIS [None]
  - RASH [None]
  - SKIN LESION [None]
